FAERS Safety Report 10959589 (Version 1)
Quarter: 2015Q1

REPORT INFORMATION
  Report Type: Spontaneous
  Country: JP (occurrence: JP)
  Receive Date: 20150327
  Receipt Date: 20150327
  Transmission Date: 20150721
  Serious: Yes (Death, Other)
  Sender: FDA-Public Use
  Company Number: JP-PFIZER INC-2015057580

PATIENT

DRUGS (1)
  1. ANCARON [Suspect]
     Active Substance: AMIODARONE HYDROCHLORIDE
     Dosage: 200 MG, DAILY
     Route: 048

REACTIONS (3)
  - Death [Fatal]
  - Dysphagia [Unknown]
  - Pneumonia aspiration [Unknown]
